FAERS Safety Report 18117659 (Version 1)
Quarter: 2020Q3

REPORT INFORMATION
  Report Type: Spontaneous
  Country: US (occurrence: US)
  Receive Date: 20200805
  Receipt Date: 20200805
  Transmission Date: 20201103
  Serious: Yes (Death)
  Sender: FDA-Public Use
  Company Number: None

PATIENT
  Age: 68 Year
  Sex: Female

DRUGS (17)
  1. BACTRIM [Concomitant]
     Active Substance: SULFAMETHOXAZOLE\TRIMETHOPRIM
  2. SMZ/TMP [Concomitant]
     Active Substance: SULFAMETHOXAZOLE\TRIMETHOPRIM
  3. DIGOXIN. [Concomitant]
     Active Substance: DIGOXIN
  4. TORSEMIDE. [Concomitant]
     Active Substance: TORSEMIDE
  5. ASTAGRAF XL [Suspect]
     Active Substance: TACROLIMUS
     Indication: RENAL TRANSPLANT
     Route: 048
     Dates: start: 20161215
  6. MAG OXIDE [Concomitant]
     Active Substance: MAGNESIUM OXIDE
  7. REMODULIN [Concomitant]
     Active Substance: TREPROSTINIL
  8. ZOLPIDEM [Concomitant]
     Active Substance: ZOLPIDEM TARTRATE
  9. PREDNISONE. [Concomitant]
     Active Substance: PREDNISONE
  10. ROSUVASTATIN. [Concomitant]
     Active Substance: ROSUVASTATIN
  11. MYCOPHENOLATE 250MG CAP [Suspect]
     Active Substance: MYCOPHENOLATE MOFETIL
     Indication: TRANSPLANT
     Route: 048
     Dates: start: 20161215
  12. RANITIDINE. [Concomitant]
     Active Substance: RANITIDINE
  13. ADCIRCA [Concomitant]
     Active Substance: TADALAFIL
  14. IBANDRONATE [Concomitant]
     Active Substance: IBANDRONATE SODIUM
  15. MAGNESIUM?OX [Concomitant]
  16. OMEPRAZOLE. [Concomitant]
     Active Substance: OMEPRAZOLE
  17. ALLOPURINOL. [Concomitant]
     Active Substance: ALLOPURINOL

REACTIONS (1)
  - Death [None]

NARRATIVE: CASE EVENT DATE: 20200804
